FAERS Safety Report 8691603 (Version 3)
Quarter: 2013Q1

REPORT INFORMATION
  Report Type: Spontaneous
  Country: TH (occurrence: TH)
  Receive Date: 20120730
  Receipt Date: 20130107
  Transmission Date: 20140127
  Serious: Yes (Other)
  Sender: FDA-Public Use
  Company Number: TH-JNJFOC-20120713024

PATIENT
  Sex: 0

DRUGS (7)
  1. PREZISTA [Suspect]
     Indication: HIV INFECTION
     Dosage: (BODY WT. 20-{30 KG,N=12) 375 MG; (WT. 30-{40 KG,N=2) 450 MG; (WT. }=40 KG,N=5) 600 MG
     Route: 065
  2. INTELENCE [Suspect]
     Indication: HIV INFECTION
     Route: 065
  3. NORVIR [Suspect]
     Indication: HIV INFECTION
     Dosage: (BODY WT. 20-{30 KG,N=12) 100 MG; (WT. 30-{40 KG,N=2) 100 MG; (WT. }=40 KG,N=5) 100 MG
     Route: 065
  4. TENOFOVIR [Suspect]
     Indication: HIV INFECTION
     Route: 065
  5. ZIDOVUDINE [Suspect]
     Indication: HIV INFECTION
     Route: 065
  6. LAMIVUDINE [Suspect]
     Indication: HIV INFECTION
     Route: 065
  7. ABACAVIR [Suspect]
     Indication: HIV INFECTION
     Route: 065

REACTIONS (2)
  - Bronchitis [Unknown]
  - Hypercholesterolaemia [Unknown]
